FAERS Safety Report 18098859 (Version 1)
Quarter: 2020Q3

REPORT INFORMATION
  Report Type: Spontaneous
  Country: AT (occurrence: AT)
  Receive Date: 20200731
  Receipt Date: 20200731
  Transmission Date: 20201103
  Serious: Yes (Death, Other)
  Sender: FDA-Public Use
  Company Number: AT-PFIZER INC-2020290602

PATIENT

DRUGS (2)
  1. LAPATINIB [Concomitant]
     Active Substance: LAPATINIB
     Indication: PANCREATIC CARCINOMA METASTATIC
  2. TRASTUZUMAB. [Suspect]
     Active Substance: TRASTUZUMAB
     Indication: PANCREATIC CARCINOMA METASTATIC
     Route: 065

REACTIONS (3)
  - Product use in unapproved indication [Fatal]
  - Death [Fatal]
  - Off label use [Fatal]
